FAERS Safety Report 14460443 (Version 2)
Quarter: 2018Q2

REPORT INFORMATION
  Report Type: Report from Study
  Country: CA (occurrence: CA)
  Receive Date: 20180130
  Receipt Date: 20180417
  Transmission Date: 20180711
  Serious: Yes (Hospitalization, Other)
  Sender: FDA-Public Use
  Company Number: CA-REGENERON PHARMACEUTICALS, INC.-2018-11573

PATIENT

DRUGS (4)
  1. EYLEA [Suspect]
     Active Substance: AFLIBERCEPT
     Dosage: 40 MG, ONCE
     Route: 031
     Dates: start: 20171220, end: 20171220
  2. EYLEA [Suspect]
     Active Substance: AFLIBERCEPT
     Dosage: UNK
     Dates: start: 20171215
  3. EYLEA [Suspect]
     Active Substance: AFLIBERCEPT
     Indication: DIABETIC RETINAL OEDEMA
     Dosage: 40 MG, UNK
     Route: 031
     Dates: start: 20171214
  4. EYLEA [Suspect]
     Active Substance: AFLIBERCEPT
     Dosage: UNK

REACTIONS (3)
  - Eye haemorrhage [Unknown]
  - Blindness [Unknown]
  - Vitrectomy [Unknown]

NARRATIVE: CASE EVENT DATE: 201712
